FAERS Safety Report 9861340 (Version 4)
Quarter: 2014Q2

REPORT INFORMATION
  Report Type: Report from Study
  Country: CA (occurrence: CA)
  Receive Date: 20140202
  Receipt Date: 20140418
  Transmission Date: 20141212
  Serious: Yes (Life-Threatening)
  Sender: FDA-Public Use
  Company Number: CA-ROCHE-1342262

PATIENT
  Age: 28 Year
  Sex: Female

DRUGS (19)
  1. RITUXAN [Suspect]
     Indication: GRANULOMATOSIS WITH POLYANGIITIS
     Dosage: LAST DOSE APR/2012
     Route: 042
     Dates: start: 2012
  2. RITUXAN [Suspect]
     Route: 042
     Dates: start: 20140227
  3. WARFARIN [Concomitant]
     Route: 065
  4. CLONIDINE [Concomitant]
     Route: 065
  5. VITAMIN C [Concomitant]
  6. ZOPICLONE [Concomitant]
     Route: 065
  7. ARANESP [Concomitant]
  8. CANDESARTAN [Concomitant]
     Dosage: DISCONTINUED
     Route: 065
  9. CIPRO [Concomitant]
     Dosage: DISCONTINUED
     Route: 065
  10. FENTANYL PATCH [Concomitant]
     Dosage: DISCONTINUED
     Route: 065
  11. GABAPENTIN [Concomitant]
     Dosage: DISCONTINUED
     Route: 065
  12. METOCLOPRAMIDE [Concomitant]
     Dosage: DISCONTINUED
     Route: 065
  13. HYDRALAZINE [Concomitant]
     Dosage: DISCONTINUED
     Route: 065
  14. PANTOLOC [Concomitant]
     Dosage: DISCONTINUED
     Route: 065
  15. PREDNISONE [Concomitant]
     Dosage: DISCONTINUED
     Route: 065
  16. VANCOMYCIN [Concomitant]
     Dosage: DISCONTINUED
     Route: 065
  17. FOLATE [Concomitant]
     Dosage: DISCONTINUED
     Route: 065
  18. ONDANSETRON [Concomitant]
     Dosage: DISCONTINUED
     Route: 065
  19. OXAZEPAM [Concomitant]
     Dosage: DISCONTINUED
     Route: 065

REACTIONS (6)
  - Pulmonary haemorrhage [Unknown]
  - Pruritus [Recovered/Resolved]
  - Infusion related reaction [Unknown]
  - Hypertension [Recovered/Resolved]
  - Pharyngitis streptococcal [Recovered/Resolved]
  - Poor venous access [Unknown]
